FAERS Safety Report 9353437 (Version 1)
Quarter: 2013Q2

REPORT INFORMATION
  Report Type: Report from Study
  Country: CA (occurrence: CA)
  Receive Date: 20130618
  Receipt Date: 20130618
  Transmission Date: 20140414
  Serious: Yes (Hospitalization, Other)
  Sender: FDA-Public Use
  Company Number: CA-UCBSA-088851

PATIENT
  Age: 83 Year
  Sex: Female

DRUGS (14)
  1. CIMZIA [Suspect]
     Indication: RHEUMATOID ARTHRITIS
     Route: 058
     Dates: start: 20130219, end: 20130425
  2. FOLIC ACID [Concomitant]
     Indication: RHEUMATOID ARTHRITIS
     Route: 048
     Dates: start: 20121003, end: 20130426
  3. FOLIC ACID [Concomitant]
     Indication: RHEUMATOID ARTHRITIS
     Route: 048
     Dates: start: 20130426
  4. PRAVACHOL [Concomitant]
     Route: 048
  5. COUMADIN [Concomitant]
     Route: 048
  6. JICTA [Concomitant]
     Route: 048
     Dates: start: 20121128
  7. PLAQUENIL [Concomitant]
     Indication: RHEUMATOID ARTHRITIS
     Route: 048
     Dates: start: 20120522, end: 20130425
  8. METHOTREXATE [Concomitant]
     Indication: RHEUMATOID ARTHRITIS
     Route: 058
     Dates: start: 20121128, end: 20130425
  9. HCTZ [Concomitant]
     Route: 048
  10. VITAMIN B12 [Concomitant]
     Route: 048
  11. FERROUS SULPHATE [Concomitant]
     Route: 048
  12. ELTORXIN [Concomitant]
     Route: 048
  13. METOPROLOL [Concomitant]
     Route: 048
     Dates: end: 20130531
  14. EZETROL [Concomitant]
     Route: 048

REACTIONS (3)
  - Atrial fibrillation [Recovering/Resolving]
  - Candida infection [Not Recovered/Not Resolved]
  - Stomatitis [Recovered/Resolved]
